FAERS Safety Report 23841871 (Version 1)
Quarter: 2024Q2

REPORT INFORMATION
  Report Type: Spontaneous
  Country: US (occurrence: None)
  Receive Date: 20240509
  Receipt Date: 20240509
  Transmission Date: 20240716
  Serious: No
  Sender: FDA-Public Use
  Company Number: None

PATIENT
  Age: 58 Year
  Sex: Male
  Weight: 132.75 kg

DRUGS (1)
  1. MOUNJARO [Suspect]
     Active Substance: TIRZEPATIDE
     Indication: Diabetes mellitus
     Dosage: OTHER FREQUENCY : ONCE A WEEK;?
     Route: 058

REACTIONS (5)
  - Tachycardia [None]
  - Middle insomnia [None]
  - Product supply issue [None]
  - Product dose omission in error [None]
  - Abnormal dreams [None]

NARRATIVE: CASE EVENT DATE: 20240509
